FAERS Safety Report 20221467 (Version 1)
Quarter: 2021Q4

REPORT INFORMATION
  Report Type: Report from Study
  Country: US (occurrence: US)
  Receive Date: 20211223
  Receipt Date: 20211223
  Transmission Date: 20220303
  Serious: Yes (Hospitalization, Other)
  Sender: FDA-Public Use
  Company Number: US-ABBVIE-21K-163-4206430-00

PATIENT
  Sex: Male

DRUGS (3)
  1. VENCLEXTA [Suspect]
     Active Substance: VENETOCLAX
     Indication: Acute myeloid leukaemia recurrent
     Dosage: 400MG DAILY ON DAYS 1-7 OF EACH 28  DAY CYCLE
     Route: 048
     Dates: start: 20211019, end: 2021
  2. DOPTELET [Concomitant]
     Active Substance: AVATROMBOPAG MALEATE
     Indication: Product used for unknown indication
  3. REZUROCK [Concomitant]
     Active Substance: BELUMOSUDIL
     Indication: Delusion

REACTIONS (10)
  - Pain [Unknown]
  - Nervous system disorder [Unknown]
  - Post procedural complication [Unknown]
  - Delusional disorder, unspecified type [Recovered/Resolved]
  - Gait inability [Unknown]
  - Red blood cell count decreased [Unknown]
  - Platelet count decreased [Unknown]
  - Mental disorder [Unknown]
  - Adverse drug reaction [Unknown]
  - White blood cell count decreased [Unknown]

NARRATIVE: CASE EVENT DATE: 20210101
